FAERS Safety Report 10977242 (Version 2)
Quarter: 2015Q3

REPORT INFORMATION
  Report Type: Spontaneous
  Country: IT (occurrence: None)
  Receive Date: 20150330
  Receipt Date: 20150804
  Transmission Date: 20151125
  Serious: Yes (Other)
  Sender: FDA-Public Use
  Company Number: IT-H14001-15-00472

PATIENT
  Age: 37 Year
  Sex: Female
  Weight: 77 kg

DRUGS (1)
  1. ONDANSETRONE HIKMA [Suspect]
     Active Substance: ONDANSETRON
     Indication: PREMEDICATION
     Dosage: CYCLICAL
     Route: 042
     Dates: start: 20141219, end: 20150310

REACTIONS (5)
  - Dyspnoea [None]
  - Infusion related reaction [None]
  - Oxygen saturation decreased [None]
  - Malaise [None]
  - Pallor [None]

NARRATIVE: CASE EVENT DATE: 20150310
